FAERS Safety Report 15595196 (Version 1)
Quarter: 2018Q4

REPORT INFORMATION
  Report Type: Spontaneous
  Country: US (occurrence: US)
  Receive Date: 20181107
  Receipt Date: 20181107
  Transmission Date: 20190205
  Serious: No
  Sender: FDA-Public Use
  Company Number: US-AMGEN-USASP2018154358

PATIENT
  Age: 55 Year
  Sex: Female
  Weight: 105.21 kg

DRUGS (12)
  1. ENBREL [Suspect]
     Active Substance: ETANERCEPT
     Indication: RHEUMATOID ARTHRITIS
     Dosage: 50 MG, QWK
     Route: 058
  2. MTX [Suspect]
     Active Substance: METHOTREXATE SODIUM
     Indication: INFLAMMATORY PAIN
     Dosage: UNK
     Route: 065
  3. ARAVA [Concomitant]
     Active Substance: LEFLUNOMIDE
  4. XELJANZ XR [Concomitant]
     Active Substance: TOFACITINIB CITRATE
     Indication: RHEUMATOID ARTHRITIS
     Dosage: 11 MG, QD
     Route: 048
  5. PHENTERMINE HCL [Concomitant]
     Active Substance: PHENTERMINE HYDROCHLORIDE
     Dosage: 37.5 MG, UNK
     Route: 048
  6. PREDNISONE. [Concomitant]
     Active Substance: PREDNISONE
     Dosage: 5 MG, (1-3 TABLETS ORALLY EACH MORNING)
     Route: 048
  7. XELJANZ [Concomitant]
     Active Substance: TOFACITINIB CITRATE
     Dosage: 11 MG, QD
  8. BLACK COHOSH [Concomitant]
     Active Substance: BLACK COHOSH
     Dosage: 40 MG, AS DIRECTED
     Route: 048
  9. PRILOSEC [Concomitant]
     Active Substance: OMEPRAZOLE MAGNESIUM
     Dosage: 20 MG, QD
     Route: 048
  10. PLAQUENIL [Concomitant]
     Active Substance: HYDROXYCHLOROQUINE SULFATE
     Dosage: 200 MG, QD
     Route: 048
  11. PREDNISONE. [Concomitant]
     Active Substance: PREDNISONE
     Dosage: 15 MG, QD
  12. PREDNISONE. [Concomitant]
     Active Substance: PREDNISONE
     Dosage: 10 MG, UNK

REACTIONS (7)
  - Fatigue [Unknown]
  - Diverticulum [Unknown]
  - Muscle spasms [Unknown]
  - Myofascial pain syndrome [Unknown]
  - Nasal congestion [Unknown]
  - Osteoarthritis [Unknown]
  - Asthenia [Unknown]

NARRATIVE: CASE EVENT DATE: 20180831
